FAERS Safety Report 22372230 (Version 1)
Quarter: 2023Q2

REPORT INFORMATION
  Report Type: Spontaneous
  Country: US (occurrence: US)
  Receive Date: 20230526
  Receipt Date: 20230526
  Transmission Date: 20230722
  Serious: No
  Sender: FDA-Public Use
  Company Number: US-BANNER LIFE SCIENCES, LLC-2023BAN000029

PATIENT

DRUGS (2)
  1. BAFIERTAM [Suspect]
     Active Substance: MONOMETHYL FUMARATE
     Indication: Facial pain
     Dosage: 95 MG 1 CAPSULE TWO TIMES DAILY DURING THE FIRST WEEK AND THEN 2 CAPSULES 2 TIMES DAILY (380 MG)
     Route: 048
     Dates: start: 20230128
  2. BAFIERTAM [Suspect]
     Active Substance: MONOMETHYL FUMARATE
     Indication: Neuralgia

REACTIONS (7)
  - Hyperhidrosis [Unknown]
  - Eye pruritus [Unknown]
  - Eructation [Unknown]
  - Cough [Unknown]
  - Flushing [Unknown]
  - Feeling hot [Unknown]
  - Pruritus [Unknown]

NARRATIVE: CASE EVENT DATE: 20230128
